FAERS Safety Report 12983224 (Version 5)
Quarter: 2017Q2

REPORT INFORMATION
  Report Type: Report from Study
  Country: DE (occurrence: DE)
  Receive Date: 20161129
  Receipt Date: 20170630
  Transmission Date: 20170830
  Serious: Yes (Hospitalization)
  Sender: FDA-Public Use
  Company Number: PHHO2016DE017075

PATIENT
  Age: 63 Year
  Sex: Male
  Weight: 105 kg

DRUGS (21)
  1. PREDNISOLON [Concomitant]
     Active Substance: PREDNISOLONE
     Indication: VASCULITIS
     Dosage: UNK, CONT
     Route: 065
     Dates: start: 20161117
  2. LBH589 [Suspect]
     Active Substance: PANOBINOSTAT
     Indication: PLASMA CELL MYELOMA
     Dosage: 10 MG, TIW
     Route: 048
     Dates: start: 20161011
  3. BORTEZOMIB [Suspect]
     Active Substance: BORTEZOMIB
     Indication: PLASMA CELL MYELOMA
     Dosage: 1 MG/M2, BIW
     Route: 058
     Dates: start: 20161011
  4. ZOMETA [Concomitant]
     Active Substance: ZOLEDRONIC ACID
     Indication: PRODUCT USED FOR UNKNOWN INDICATION
     Dosage: 4 MG, QW4
     Route: 042
     Dates: start: 20151110, end: 20161025
  5. BEPANTHEN [Concomitant]
     Active Substance: DEXPANTHENOL
     Indication: RHINITIS
     Dosage: UNK UNK, CONT
     Route: 065
     Dates: start: 20161117
  6. ALLOPURINOL. [Concomitant]
     Active Substance: ALLOPURINOL
     Indication: HYPERURICAEMIA
     Dosage: UNK UNK, CONT
     Route: 048
  7. CIPROBAY [Concomitant]
     Active Substance: CIPROFLOXACIN
     Indication: COUGH
     Dosage: 500 MG, BID
     Route: 048
     Dates: start: 20161104, end: 20161114
  8. AUGMENTAN [Concomitant]
     Active Substance: AMOXICILLIN\CLAVULANATE POTASSIUM
     Indication: DYSPNOEA
     Dosage: 875 MG, BID
     Route: 048
     Dates: start: 20161115
  9. CANDESARTAN. [Concomitant]
     Active Substance: CANDESARTAN
     Indication: HYPERTENSION
     Dosage: UNK, CONT
     Route: 048
     Dates: end: 20161117
  10. TAVANIC [Concomitant]
     Active Substance: LEVOFLOXACIN
     Indication: RESPIRATORY TRACT INFECTION
     Dosage: UNK UNK, CONT
     Route: 065
     Dates: start: 20161117, end: 20161117
  11. NEUPOGEN [Concomitant]
     Active Substance: FILGRASTIM
     Indication: GRANULOCYTOPENIA
  12. VITAMIN B COMPLEX [Concomitant]
     Active Substance: CYANOCOBALAMIN\DEXPANTHENOL\NIACINAMIDE\PYRIDOXINE HYDROCHLORIDE\RIBOFLAVIN 5^-PHOSPHATE SODIUM\THIAMINE HYDROCHLORIDE\VITAMIN B COMPLEX
     Indication: VITAMIN SUPPLEMENTATION
     Dosage: UNK UNK, CONT
     Route: 048
     Dates: start: 20160830
  13. DEXAMETHASONE. [Suspect]
     Active Substance: DEXAMETHASONE
     Indication: PLASMA CELL MYELOMA
     Dosage: 20 MG, OT
     Route: 048
     Dates: start: 20161011
  14. NEUPOGEN [Concomitant]
     Active Substance: FILGRASTIM
     Indication: GRANULOCYTE COUNT DECREASED
     Dosage: 48 IU, OT
     Route: 058
     Dates: start: 20161117
  15. ZOMETA [Concomitant]
     Active Substance: ZOLEDRONIC ACID
     Dosage: UNK
     Route: 065
     Dates: start: 20161110
  16. PANTOPRAZOL [Concomitant]
     Active Substance: PANTOPRAZOLE SODIUM
     Indication: PROPHYLAXIS
     Dosage: 40 MG, CONT
     Route: 048
     Dates: start: 20140623
  17. PREGABALIN. [Concomitant]
     Active Substance: PREGABALIN
     Indication: POLYNEUROPATHY
     Dosage: 100 MG, CONT
     Route: 048
     Dates: start: 20160229
  18. VITAMIN B [Concomitant]
     Active Substance: VITAMIN B
     Indication: VITAMIN SUPPLEMENTATION
     Dosage: UNK
     Route: 065
     Dates: start: 20160830
  19. TAVANIC [Concomitant]
     Active Substance: LEVOFLOXACIN
     Dosage: UNK
     Route: 065
  20. FUCICORT [Concomitant]
     Active Substance: BETAMETHASONE VALERATE\FUSIDIC ACID
     Indication: VASCULITIS
     Dosage: UNK UNK, CONT
     Route: 065
     Dates: start: 20161117
  21. TAMSULOSIN [Concomitant]
     Active Substance: TAMSULOSIN
     Indication: BLADDER DYSFUNCTION
     Dosage: UNK UNK, CONT
     Route: 048

REACTIONS (1)
  - Myocardial necrosis marker increased [Recovered/Resolved]

NARRATIVE: CASE EVENT DATE: 20161117
